FAERS Safety Report 9421270 (Version 2)
Quarter: 2014Q1

REPORT INFORMATION
  Report Type: Spontaneous
  Country: US (occurrence: US)
  Receive Date: 20130725
  Receipt Date: 20140103
  Transmission Date: 20141002
  Serious: Yes (Hospitalization)
  Sender: FDA-Public Use
  Company Number: US-B.I. PHARMACEUTICALS,INC./RIDGEFIELD-2013-BI-21834BP

PATIENT
  Age: 61 Year
  Sex: Male
  Weight: 108.86 kg

DRUGS (27)
  1. PRADAXA [Suspect]
     Indication: ATRIAL FIBRILLATION
     Dates: start: 20101207, end: 20121120
  2. ROBAXIN [Concomitant]
  3. MIRALAX [Concomitant]
     Indication: CONSTIPATION
  4. LEXAPRO [Concomitant]
  5. LIPITOR [Concomitant]
  6. ALLOPURINOL [Concomitant]
  7. INDOMETHACIN [Concomitant]
  8. RANITIDINE [Concomitant]
  9. ZOFRAN [Concomitant]
  10. LANTUS [Concomitant]
     Dosage: 45 U
  11. LOSARTAN [Concomitant]
  12. ATIVAN [Concomitant]
  13. PYRIDIUM [Concomitant]
  14. REGLAN [Concomitant]
  15. BUMEX [Concomitant]
  16. JANUVIA [Concomitant]
  17. LUNESTA [Concomitant]
     Dosage: 3 MG
  18. COMBIVENT [Concomitant]
  19. PATADAY [Concomitant]
  20. FOLIC ACID [Concomitant]
  21. PROMETHAZINE [Concomitant]
  22. VITAMIN D3 [Concomitant]
  23. INSULIN [Concomitant]
  24. NITROGLYCERIN [Concomitant]
  25. VICODIN [Concomitant]
  26. MELATONIN [Concomitant]
  27. SPIRONOLACTONE [Concomitant]

REACTIONS (4)
  - Anaemia [Unknown]
  - Coagulopathy [Unknown]
  - Haematochezia [Unknown]
  - Haematuria [Unknown]
